FAERS Safety Report 15978357 (Version 4)
Quarter: 2019Q2

REPORT INFORMATION
  Report Type: Spontaneous
  Country: BR (occurrence: BR)
  Receive Date: 20190219
  Receipt Date: 20190404
  Transmission Date: 20190711
  Serious: Yes (Other)
  Sender: FDA-Public Use
  Company Number: BR-ROCHE-2266435

PATIENT
  Age: 4 Year
  Sex: Female
  Weight: 16 kg

DRUGS (13)
  1. FENOBARBITAL [Concomitant]
     Active Substance: PHENOBARBITAL
     Dosage: 90 DROPS
     Route: 065
  2. DALMADORM [Concomitant]
     Active Substance: FLURAZEPAM HYDROCHLORIDE
     Route: 065
  3. HYDROCORTISONE. [Concomitant]
     Active Substance: HYDROCORTISONE
     Route: 048
  4. CLONAZEPAM. [Concomitant]
     Active Substance: CLONAZEPAM
     Dosage: 5 DROPS IN THE MORNING AND 4 DROPS IN THE EVENING.
     Route: 065
  5. MABTHERA [Suspect]
     Active Substance: RITUXIMAB
     Indication: ENCEPHALITIS AUTOIMMUNE
     Dosage: 10 MG/ML
     Route: 042
     Dates: start: 20190119, end: 20190119
  6. RISPERIDONE. [Concomitant]
     Active Substance: RISPERIDONE
     Dosage: HALF TABLET IN THE MORNING AND 1 TABLET AT NIGHT
     Route: 065
  7. CANNABIDIOL [Concomitant]
     Active Substance: CANNABIDIOL
     Dosage: 10 DROPS
     Route: 065
  8. DEPAKENE [Concomitant]
     Active Substance: VALPROIC ACID
     Route: 065
  9. MACRODANTIN [Concomitant]
     Active Substance: NITROFURANTOIN
     Route: 065
  10. PARACETAMOL [Concomitant]
     Active Substance: ACETAMINOPHEN
     Route: 048
  11. VIMPAT [Concomitant]
     Active Substance: LACOSAMIDE
     Route: 065
  12. KEPPRA [Concomitant]
     Active Substance: LEVETIRACETAM
     Route: 065
  13. L-CARNITINE [Concomitant]
     Active Substance: LEVOCARNITINE
     Route: 065

REACTIONS (7)
  - Product administration error [Unknown]
  - Off label use [Unknown]
  - Oxygen saturation decreased [Recovered/Resolved]
  - Tachycardia [Recovered/Resolved]
  - Product use issue [Unknown]
  - Incorrect product administration duration [Unknown]
  - Intentional product use issue [Unknown]

NARRATIVE: CASE EVENT DATE: 20190119
